FAERS Safety Report 22186532 (Version 1)
Quarter: 2023Q2

REPORT INFORMATION
  Report Type: Spontaneous
  Country: US (occurrence: None)
  Receive Date: 20230407
  Receipt Date: 20230407
  Transmission Date: 20230721
  Serious: Yes (unspecified)
  Sender: FDA-Public Use
  Company Number: None

PATIENT
  Age: 35 Year
  Sex: Female
  Weight: 49.5 kg

DRUGS (1)
  1. (RE)SETTING REFRESHING MIST SPF 40 [Suspect]
     Active Substance: AVOBENZONE\HOMOSALATE\OCTISALATE\OCTOCRYLENE
     Indication: Prophylaxis against solar radiation
     Dosage: OTHER FREQUENCY : 2 HOURS IN SUN;?
     Route: 061
     Dates: start: 20220914, end: 20220914

REACTIONS (5)
  - Hypersensitivity [None]
  - Dermatitis contact [None]
  - Injury [None]
  - Scar [None]
  - Skin texture abnormal [None]

NARRATIVE: CASE EVENT DATE: 20220914
